FAERS Safety Report 24183161 (Version 1)
Quarter: 2024Q3

REPORT INFORMATION
  Report Type: Other
  Country: US (occurrence: US)
  Receive Date: 20240807
  Receipt Date: 20240807
  Transmission Date: 20241017
  Serious: Yes (Hospitalization)
  Sender: ORBION PHARMACEUTICALS
  Company Number: US-OrBion Pharmaceuticals Private Limited-2160093

PATIENT
  Age: 18 Year
  Sex: Female

DRUGS (2)
  1. AMLODIPINE BESYLATE [Suspect]
     Active Substance: AMLODIPINE BESYLATE
     Indication: Overdose
     Route: 065
  2. ACETAMINOPHEN [Suspect]
     Active Substance: ACETAMINOPHEN
     Route: 065

REACTIONS (5)
  - Non-cardiogenic pulmonary oedema [Recovered/Resolved]
  - Overdose [Unknown]
  - Harlequin syndrome [Recovered/Resolved]
  - Cardiogenic shock [Recovered/Resolved]
  - Vasoplegia syndrome [Recovered/Resolved]
